FAERS Safety Report 9742279 (Version 1)
Quarter: 2013Q4

REPORT INFORMATION
  Report Type: Report from Study
  Country: JP (occurrence: JP)
  Receive Date: 20131210
  Receipt Date: 20131210
  Transmission Date: 20140711
  Serious: Yes (Hospitalization)
  Sender: FDA-Public Use
  Company Number: JP-EISAI INC-E2020-13298-SOL-JP

PATIENT
  Age: 90 Year
  Sex: Male

DRUGS (3)
  1. ARICEPT [Suspect]
     Indication: DEMENTIA ALZHEIMER^S TYPE
     Route: 048
     Dates: start: 20110328, end: 20130115
  2. ARICEPT [Suspect]
     Route: 048
     Dates: start: 20130116, end: 20130813
  3. LIPITOR [Concomitant]
     Route: 048

REACTIONS (1)
  - Pneumonia aspiration [Recovered/Resolved]
